FAERS Safety Report 13153455 (Version 1)
Quarter: 2017Q1

REPORT INFORMATION
  Report Type: Spontaneous
  Country: US (occurrence: US)
  Receive Date: 20170126
  Receipt Date: 20170126
  Transmission Date: 20170428
  Serious: No
  Sender: FDA-Public Use
  Company Number: US-HORIZON-PRE-0008-2017

PATIENT
  Age: 62 Year
  Sex: Female

DRUGS (1)
  1. RAYOS [Suspect]
     Active Substance: PREDNISONE
     Indication: RHEUMATOID ARTHRITIS
     Dosage: 2 MG AT BEDTIME
     Dates: start: 201701, end: 201701

REACTIONS (3)
  - Pruritus [Unknown]
  - Nausea [Unknown]
  - Swelling face [Unknown]

NARRATIVE: CASE EVENT DATE: 201701
